FAERS Safety Report 8918563 (Version 2)
Quarter: 2014Q4

REPORT INFORMATION
  Report Type: Spontaneous
  Country: US (occurrence: US)
  Receive Date: 20121120
  Receipt Date: 20141219
  Transmission Date: 20150529
  Serious: No
  Sender: FDA-Public Use
  Company Number: US-ASTRAZENECA-2012SE19144

PATIENT
  Age: 41 Year
  Sex: Female

DRUGS (1)
  1. NEXIUM [Suspect]
     Active Substance: ESOMEPRAZOLE MAGNESIUM
     Indication: GASTROOESOPHAGEAL REFLUX DISEASE
     Route: 048
     Dates: end: 20141205

REACTIONS (6)
  - Intentional product misuse [Unknown]
  - Drug dose omission [Unknown]
  - Feeling abnormal [Unknown]
  - Dyspepsia [Unknown]
  - Eructation [Unknown]
  - Adverse event [Unknown]
